FAERS Safety Report 20866908 (Version 1)
Quarter: 2022Q2

REPORT INFORMATION
  Report Type: Spontaneous
  Country: US (occurrence: None)
  Receive Date: 20220523
  Receipt Date: 20220523
  Transmission Date: 20220720
  Serious: Yes (Disabling)
  Sender: FDA-Public Use
  Company Number: None

PATIENT
  Age: 83 Year
  Sex: Female
  Weight: 68.4 kg

DRUGS (9)
  1. BUPROPION HYDROCHLORIDE XL [Suspect]
     Active Substance: BUPROPION HYDROCHLORIDE
     Indication: Post-traumatic stress disorder
     Dosage: OTHER QUANTITY : 2 TABLET(S);?
     Route: 048
     Dates: start: 20220403, end: 20220523
  2. LAMOTRIGINE [Concomitant]
     Active Substance: LAMOTRIGINE
  3. ACYCLOVIR [Concomitant]
     Active Substance: ACYCLOVIR
  4. MYRBRTRIQ [Concomitant]
  5. ZYRTEC [Concomitant]
     Active Substance: CETIRIZINE HYDROCHLORIDE
  6. PEPCID AC [Concomitant]
     Active Substance: FAMOTIDINE
  7. BIOTIN [Concomitant]
     Active Substance: BIOTIN
  8. TYLENOL [Concomitant]
     Active Substance: ACETAMINOPHEN
  9. VOLTARIN [Concomitant]

REACTIONS (5)
  - Insomnia [None]
  - Psychomotor hyperactivity [None]
  - Weight decreased [None]
  - Fall [None]
  - Product substitution issue [None]

NARRATIVE: CASE EVENT DATE: 20220522
